FAERS Safety Report 7484761-3 (Version None)
Quarter: 2011Q2

REPORT INFORMATION
  Report Type: 
  Country: None (occurrence: None)
  Receive Date: 20110517
  Receipt Date: 20110504
  Transmission Date: 20111010
  Serious: Yes (Hospitalization)
  Sender: FDA-Public Use
  Company Number: DE-ROCHE-732008

PATIENT
  Sex: Female
  Weight: 61 kg

DRUGS (16)
  1. SEDOTUSSIN [Concomitant]
     Dates: start: 20100301
  2. IBUPROFEN [Concomitant]
     Dates: start: 20091201
  3. FOLSAN [Concomitant]
     Dosage: TDD: 1DF/D
     Dates: start: 20100505
  4. KEVATRIL [Concomitant]
     Dosage: 1 AMPULE
     Dates: start: 20100512
  5. FUROSEMID [Concomitant]
     Dates: end: 20100601
  6. BEVACIZUMAB [Suspect]
     Indication: NON-SMALL CELL LUNG CANCER
     Dosage: FORM: INFUSION, LAST DOSE PRIOR TO SAE: 11 OCTOBER 2010.
     Route: 042
     Dates: start: 20100512, end: 20101028
  7. PEMETREXED [Suspect]
     Indication: NON-SMALL CELL LUNG CANCER
     Dosage: FORM: INFUSION, LAST DOSE PRIOR TO SAE: 11 OCTOBER 2010.
     Route: 042
     Dates: start: 20100510
  8. PEMETREXED [Suspect]
     Dosage: INFUSION. LAST ODSE PRIOR TO SAE 21 SEP 2010
     Route: 042
     Dates: start: 20100512
  9. DEXAMETHASONE [Concomitant]
  10. DEXAMETHASONE [Concomitant]
     Dates: start: 20100512
  11. PEMETREXED [Suspect]
     Dosage: FORM: INFUSION, LAST DOSE PRIOR TO SAE: 11 OCTOBER 2010.
     Route: 042
     Dates: start: 20100521, end: 20101028
  12. DEXAMETHASONE [Concomitant]
     Dosage: TDD: 1 DF/D.
     Dates: start: 20100512, end: 20101011
  13. DEXAMETHASONE [Concomitant]
     Dosage: TDD: 1DF/D.
     Dates: start: 20100511
  14. PANTOPRAZOLE [Concomitant]
     Dates: start: 20091201
  15. DOXYCYCLINE [Concomitant]
     Dates: start: 20100516
  16. CLONAZEPAM [Concomitant]
     Dates: start: 20100512

REACTIONS (5)
  - DEHYDRATION [None]
  - DECREASED APPETITE [None]
  - FATIGUE [None]
  - GENERAL PHYSICAL HEALTH DETERIORATION [None]
  - WEIGHT DECREASED [None]
